FAERS Safety Report 9705430 (Version 1)
Quarter: 2013Q4

REPORT INFORMATION
  Report Type: Spontaneous
  Country: ES (occurrence: ES)
  Receive Date: 20131122
  Receipt Date: 20131122
  Transmission Date: 20140711
  Serious: Yes (Other)
  Sender: FDA-Public Use
  Company Number: PHHY2013ES132949

PATIENT
  Age: 83 Year
  Sex: Female

DRUGS (3)
  1. SINTROM [Suspect]
     Dosage: UNK UKN, UNK
     Route: 048
     Dates: start: 20130101
  2. PARACETAMOL [Suspect]
     Dosage: UNK UKN, UNK
     Dates: start: 20130101, end: 20131016
  3. CLOPIDOGREL [Interacting]
     Dosage: UNK UKN, UNK
     Dates: start: 20130101

REACTIONS (1)
  - Haematoma [Recovered/Resolved]
